FAERS Safety Report 5275508-X (Version None)
Quarter: 2007Q1

REPORT INFORMATION
  Report Type: 
  Country: None (occurrence: None)
  Receive Date: 20070326
  Receipt Date: 20070315
  Transmission Date: 20070707
  Serious: Yes (Other)
  Sender: FDA-Public Use
  Company Number: DE-JNJFOC-20070303405

PATIENT
  Age: 89 Year
  Sex: Female
  Weight: 85.5 kg

DRUGS (9)
  1. RISPERDAL [Suspect]
     Route: 048
  2. RISPERDAL [Suspect]
     Route: 048
  3. RISPERDAL [Suspect]
     Indication: DRUG USE FOR UNKNOWN INDICATION
     Route: 048
  4. ENALAPRIL MALEATE [Interacting]
     Indication: DRUG USE FOR UNKNOWN INDICATION
     Route: 048
  5. CORANGIN [Interacting]
     Indication: DRUG USE FOR UNKNOWN INDICATION
     Route: 048
  6. DOMINAL [Interacting]
     Route: 048
  7. DOMINAL [Interacting]
     Indication: DRUG USE FOR UNKNOWN INDICATION
     Route: 048
  8. EXELON [Concomitant]
     Route: 048
  9. ASPIRIN [Concomitant]
     Route: 048

REACTIONS (2)
  - DRUG INTERACTION [None]
  - SYNCOPE [None]
